FAERS Safety Report 5554258-6 (Version None)
Quarter: 2007Q4

REPORT INFORMATION
  Report Type: 
  Country: None (occurrence: None)
  Receive Date: 20071213
  Receipt Date: 20071204
  Transmission Date: 20080405
  Serious: Yes (Hospitalization)
  Sender: FDA-Public Use
  Company Number: A0697375A

PATIENT
  Age: 48 Year
  Sex: Female
  Weight: 59.9 kg

DRUGS (2)
  1. LAPATINIB [Suspect]
     Dosage: 1500MG PER DAY
     Route: 048
     Dates: start: 20070803
  2. ALLOPURINOL [Concomitant]
     Dosage: 100MG TWICE PER DAY
     Route: 048
     Dates: start: 20070201

REACTIONS (1)
  - PELVIC PAIN [None]
